FAERS Safety Report 8462759-6 (Version None)
Quarter: 2012Q2

REPORT INFORMATION
  Report Type: 
  Country: None (occurrence: None)
  Receive Date: 20120625
  Receipt Date: 20120618
  Transmission Date: 20120825
  Serious: Yes (Death, Hospitalization, Other)
  Sender: FDA-Public Use
  Company Number: BR-BAYER-2012-035971

PATIENT
  Age: 69 Year
  Sex: Female
  Weight: 60 kg

DRUGS (7)
  1. PROPRANOLOL [Concomitant]
     Indication: VARICES OESOPHAGEAL
     Dosage: 1 DF, QD
     Route: 048
     Dates: start: 20120101
  2. NEXAVAR [Suspect]
     Indication: HEPATIC NEOPLASM MALIGNANT
     Dosage: 400 MG, BID
     Route: 048
     Dates: start: 20110801, end: 20120201
  3. SPIRONOLACTONE [Concomitant]
     Indication: DIURETIC THERAPY
     Dosage: 1 DF, QD
     Route: 048
     Dates: start: 20120101
  4. FUROSEMIDE [Concomitant]
     Indication: DIURETIC THERAPY
     Dosage: 1 DF, QD
     Route: 048
     Dates: start: 20120101
  5. NEXAVAR [Suspect]
     Dosage: 200 MG, BID
     Dates: start: 20120409
  6. OMEPRAZOLE [Concomitant]
     Indication: VARICES OESOPHAGEAL
     Dosage: 20 MG, QD
     Route: 048
     Dates: start: 20050101
  7. PROPRANOLOL [Concomitant]
     Indication: HYPERTENSION
     Dosage: 40 MG, QD
     Route: 048

REACTIONS (8)
  - DISSOCIATION [None]
  - BACK PAIN [None]
  - GASTROINTESTINAL HAEMORRHAGE [None]
  - PANCREATITIS [None]
  - MENTAL DISORDER [None]
  - ASCITES [None]
  - LOSS OF CONSCIOUSNESS [None]
  - SYNCOPE [None]
